FAERS Safety Report 18569393 (Version 1)
Quarter: 2020Q4

REPORT INFORMATION
  Report Type: Spontaneous
  Country: US (occurrence: US)
  Receive Date: 20201202
  Receipt Date: 20201202
  Transmission Date: 20210114
  Serious: No
  Sender: FDA-Public Use
  Company Number: None

PATIENT
  Age: 83 Year
  Sex: Male
  Weight: 79.2 kg

DRUGS (7)
  1. DEFERASIROX. [Suspect]
     Active Substance: DEFERASIROX
     Indication: MYELODYSPLASTIC SYNDROME
     Route: 048
     Dates: start: 20200611
  2. VITAMIN D3, ORAL [Concomitant]
  3. FOLIC ACID, ORAL [Concomitant]
  4. VITAMIN C, ORAL [Concomitant]
  5. FLOMAX 0.4MG, ORAL [Concomitant]
  6. ATORVASTATIN CALCIUM 10MG, ORAL [Concomitant]
  7. COQ10, ORAL [Concomitant]

REACTIONS (1)
  - Diarrhoea [None]

NARRATIVE: CASE EVENT DATE: 20201201
